FAERS Safety Report 19910016 (Version 2)
Quarter: 2021Q4

REPORT INFORMATION
  Report Type: Report from Study
  Country: CA (occurrence: CA)
  Receive Date: 20211003
  Receipt Date: 20211013
  Transmission Date: 20220303
  Serious: Yes (Hospitalization, Other)
  Sender: FDA-Public Use
  Company Number: PHHY2017CA050182

PATIENT
  Age: 57 Year
  Sex: Male

DRUGS (4)
  1. SANDOSTATIN LAR DEPOT [Suspect]
     Active Substance: OCTREOTIDE ACETATE
     Indication: Carcinoid tumour
     Dosage: 30 MG, QMO (ONCE A MONTH) (4 WEEKS)
     Route: 030
     Dates: start: 20161229
  2. SANDOSTATIN LAR DEPOT [Suspect]
     Active Substance: OCTREOTIDE ACETATE
  3. SANDOSTATIN LAR DEPOT [Suspect]
     Active Substance: OCTREOTIDE ACETATE
  4. ZOCOR [Concomitant]
     Active Substance: SIMVASTATIN
     Indication: Product used for unknown indication
     Dosage: UNK
     Route: 048

REACTIONS (16)
  - Procedural complication [Unknown]
  - Sepsis [Unknown]
  - Liver abscess [Unknown]
  - Malaise [Unknown]
  - Cholelithiasis [Unknown]
  - Movement disorder [Unknown]
  - Blood pressure diastolic increased [Unknown]
  - Fatigue [Unknown]
  - Pain [Unknown]
  - Chills [Unknown]
  - Dysphonia [Unknown]
  - Stress [Unknown]
  - Hypotension [Unknown]
  - Dizziness [Unknown]
  - Injection site hypersensitivity [Unknown]
  - Disease progression [Unknown]

NARRATIVE: CASE EVENT DATE: 20170101
